FAERS Safety Report 7099175-8 (Version None)
Quarter: 2010Q4

REPORT INFORMATION
  Report Type: 
  Country: None (occurrence: None)
  Receive Date: 20101112
  Receipt Date: 20101109
  Transmission Date: 20110411
  Serious: Yes (Death, Life-Threatening, Hospitalization, Other)
  Sender: FDA-Public Use
  Company Number: PHHO2010BE16929

PATIENT
  Sex: Male
  Weight: 78 kg

DRUGS (10)
  1. NEORAL [Suspect]
     Indication: LIVER TRANSPLANT
     Dosage: 75 MG, BID
     Route: 048
     Dates: start: 20070901
  2. MEDROL [Suspect]
     Indication: LIVER TRANSPLANT
     Dosage: 2 MG, QD
     Route: 048
  3. CELLCEPT [Suspect]
     Indication: LIVER TRANSPLANT
     Dosage: 500 MG, BID
     Route: 048
     Dates: start: 20070901
  4. AMLOR [Concomitant]
  5. EMCONCOR [Concomitant]
  6. MAGNESIUM [Concomitant]
  7. EZETROL [Concomitant]
  8. LANTUS [Concomitant]
  9. NOVORAPID [Concomitant]
  10. CRESTOR [Concomitant]

REACTIONS (4)
  - CARDIO-RESPIRATORY ARREST [None]
  - ISCHAEMIC HEPATITIS [None]
  - MULTI-ORGAN FAILURE [None]
  - POST PROCEDURAL SEPSIS [None]
